FAERS Safety Report 25526511 (Version 2)
Quarter: 2025Q4

REPORT INFORMATION
  Report Type: Spontaneous
  Country: KR (occurrence: KR)
  Receive Date: 20250707
  Receipt Date: 20251017
  Transmission Date: 20260118
  Serious: Yes (Disabling)
  Sender: MERCK SHARP & DOHME LLC
  Company Number: KR-009507513-2303361

PATIENT
  Age: 6 Year
  Sex: Female

DRUGS (2)
  1. TEMOZOLOMIDE [Suspect]
     Active Substance: TEMOZOLOMIDE
     Indication: Pinealoblastoma
     Dosage: 40 MG, QD, STRENGTH: 100 MG
     Route: 048
     Dates: start: 20241014, end: 20241018
  2. IRINOTECAN HYDROCHLORIDE [Suspect]
     Active Substance: IRINOTECAN HYDROCHLORIDE
     Indication: Pinealoblastoma
     Dosage: TIME INTERVAL: 0.14285714 WEEKS
     Route: 065
     Dates: start: 20241014, end: 20241018

REACTIONS (3)
  - Hepatic enzyme increased [Recovering/Resolving]
  - Blood creatinine increased [Recovering/Resolving]
  - Acute kidney injury [Recovering/Resolving]

NARRATIVE: CASE EVENT DATE: 20241021
